FAERS Safety Report 7299039-0 (Version None)
Quarter: 2011Q1

REPORT INFORMATION
  Report Type: 
  Country: None (occurrence: None)
  Receive Date: 20110217
  Receipt Date: 20110207
  Transmission Date: 20110831
  Serious: Yes (Hospitalization, Other)
  Sender: FDA-Public Use
  Company Number: US-AMGEN-USASP2011007565

PATIENT
  Age: 56 Year
  Sex: Female

DRUGS (5)
  1. ENBREL [Suspect]
     Indication: RHEUMATOID ARTHRITIS
     Dosage: 50 MG, QWK
     Dates: start: 20050101, end: 20100501
  2. ENBREL [Suspect]
     Indication: LUMBAR SPINAL STENOSIS
  3. ENBREL [Suspect]
     Indication: OSTEOARTHRITIS
  4. ENBREL [Suspect]
     Indication: FIBROMYALGIA
  5. ENBREL [Suspect]
     Indication: OSTEOPOROSIS

REACTIONS (9)
  - STAPHYLOCOCCAL INFECTION [None]
  - BACK PAIN [None]
  - RHEUMATOID LUNG [None]
  - MYELODYSPLASTIC SYNDROME [None]
  - IRON DEFICIENCY ANAEMIA [None]
  - ARTHRALGIA [None]
  - SEPSIS [None]
  - CATHETER SITE INFECTION [None]
  - GAIT DISTURBANCE [None]
